FAERS Safety Report 17763393 (Version 1)
Quarter: 2020Q2

REPORT INFORMATION
  Report Type: Spontaneous
  Country: US (occurrence: US)
  Receive Date: 20200509
  Receipt Date: 20200509
  Transmission Date: 20200714
  Serious: No
  Sender: FDA-Public Use
  Company Number: US-TAKEDA-2020TUS021586

PATIENT
  Age: 44 Year
  Sex: Female

DRUGS (1)
  1. ENTYVIO [Suspect]
     Active Substance: VEDOLIZUMAB
     Indication: CROHN^S DISEASE
     Dosage: 300 MILLIGRAM
     Route: 042
     Dates: start: 201802

REACTIONS (2)
  - Photosensitivity reaction [Not Recovered/Not Resolved]
  - Polymorphic light eruption [Not Recovered/Not Resolved]

NARRATIVE: CASE EVENT DATE: 201802
